FAERS Safety Report 6882642-7 (Version None)
Quarter: 2010Q3

REPORT INFORMATION
  Report Type: 
  Country: None (occurrence: None)
  Receive Date: 20100701
  Receipt Date: 20090908
  Transmission Date: 20110219
  Serious: Yes (Other)
  Sender: FDA-Public Use
  Company Number: 208535USA

PATIENT
  Sex: Female

DRUGS (1)
  1. SEASONIQUE [Suspect]

REACTIONS (1)
  - PORTAL VEIN THROMBOSIS [None]
